FAERS Safety Report 18409958 (Version 1)
Quarter: 2020Q4

REPORT INFORMATION
  Report Type: Spontaneous
  Country: US (occurrence: US)
  Receive Date: 20201021
  Receipt Date: 20201021
  Transmission Date: 20210114
  Serious: Yes (Hospitalization)
  Sender: FDA-Public Use
  Company Number: None

PATIENT
  Sex: Male
  Weight: 117 kg

DRUGS (2)
  1. TAXOL [Suspect]
     Active Substance: PACLITAXEL
     Dates: end: 20201008
  2. CARBOPLATIN. [Suspect]
     Active Substance: CARBOPLATIN
     Dates: end: 20201008

REACTIONS (7)
  - Hypotension [None]
  - Acute kidney injury [None]
  - Spinal fracture [None]
  - Hypokalaemia [None]
  - Presyncope [None]
  - Electrocardiogram QT prolonged [None]
  - Back pain [None]

NARRATIVE: CASE EVENT DATE: 20201010
